FAERS Safety Report 8066971-X (Version None)
Quarter: 2012Q1

REPORT INFORMATION
  Report Type: 
  Country: None (occurrence: None)
  Receive Date: 20120124
  Receipt Date: 20120119
  Transmission Date: 20120608
  Serious: Yes (Hospitalization)
  Sender: FDA-Public Use
  Company Number: IT-MERCK-1109ITA00034

PATIENT
  Age: 70 Year
  Sex: Male

DRUGS (3)
  1. VYTORIN [Suspect]
     Indication: DYSLIPIDAEMIA
     Route: 048
     Dates: start: 20070101, end: 20110913
  2. NIMESULIDE [Suspect]
     Indication: ARTHRALGIA
     Route: 065
     Dates: start: 20060901, end: 20110913
  3. METFORMIN HYDROCHLORIDE [Suspect]
     Indication: TYPE 2 DIABETES MELLITUS
     Route: 048
     Dates: start: 20070101, end: 20110913

REACTIONS (3)
  - HYPOTENSION [None]
  - MYOGLOBINURIA [None]
  - RENAL FAILURE ACUTE [None]
